FAERS Safety Report 7514799-9 (Version None)
Quarter: 2011Q2

REPORT INFORMATION
  Report Type: 
  Country: None (occurrence: None)
  Receive Date: 20110601
  Receipt Date: 20110513
  Transmission Date: 20111010
  Serious: No
  Sender: FDA-Public Use
  Company Number: US-B.I. PHARMACEUTICALS,INC./RIDGEFIELD-2011-BP-12974BP

PATIENT
  Age: 69 Year
  Sex: Female

DRUGS (4)
  1. PRADAXA [Suspect]
     Indication: ATRIAL FIBRILLATION
     Dosage: 300 MG
     Route: 048
     Dates: start: 20110401
  2. POTASSIUM CHLORIDE [Concomitant]
     Indication: MINERAL SUPPLEMENTATION
     Dosage: 20 MEQ
     Route: 048
  3. SOTALOL HCL [Concomitant]
     Indication: ARRHYTHMIA
     Dosage: 80 MG
     Route: 048
  4. BUMEX [Concomitant]
     Indication: DIURETIC THERAPY
     Dosage: 3 MG
     Route: 048

REACTIONS (2)
  - CARDIAC FLUTTER [None]
  - PAIN IN JAW [None]
